FAERS Safety Report 6031517-4 (Version None)
Quarter: 2008Q4

REPORT INFORMATION
  Report Type: 
  Country: None (occurrence: None)
  Receive Date: 20081224
  Receipt Date: 20080108
  Transmission Date: 20090506
  Serious: Yes (Other)
  Sender: FDA-Public Use
  Company Number: FEI2008-0004

PATIENT
  Age: 44 Year
  Sex: Female
  Weight: 58.9676 kg

DRUGS (2)
  1. PARAGARD T 380A [Suspect]
     Indication: CONTRACEPTION
     Dosage: INTRA-UTERINE : INTRA-UTERINE
     Route: 015
     Dates: start: 20070913, end: 20071114
  2. PARAGARD T 380A [Suspect]
     Indication: CONTRACEPTION
     Dosage: INTRA-UTERINE : INTRA-UTERINE
     Route: 015
     Dates: start: 20071114

REACTIONS (4)
  - INTRA-UTERINE CONTRACEPTIVE DEVICE [None]
  - IUCD COMPLICATION [None]
  - UTERINE ENLARGEMENT [None]
  - UTERINE LEIOMYOMA [None]
